FAERS Safety Report 15956107 (Version 2)
Quarter: 2019Q1

REPORT INFORMATION
  Report Type: Spontaneous
  Country: GR (occurrence: GR)
  Receive Date: 20190213
  Receipt Date: 20190327
  Transmission Date: 20190417
  Serious: Yes (Other)
  Sender: FDA-Public Use
  Company Number: GR-TEVA-2019-GR-1011165

PATIENT
  Age: 68 Year
  Sex: Male

DRUGS (2)
  1. FOLIC ACID. [Concomitant]
     Active Substance: FOLIC ACID
     Dosage: 5 MG PER WEEK
  2. METHOTREXATE. [Suspect]
     Active Substance: METHOTREXATE
     Dosage: 10-15 MG PER WEEK

REACTIONS (2)
  - Glycosylated haemoglobin increased [Recovered/Resolved]
  - Diabetes mellitus inadequate control [Recovered/Resolved]
